FAERS Safety Report 8682164 (Version 4)
Quarter: 2013Q3

REPORT INFORMATION
  Report Type: Report from Study
  Country: JP (occurrence: JP)
  Receive Date: 20120725
  Receipt Date: 20130801
  Transmission Date: 20140515
  Serious: Yes (Hospitalization)
  Sender: FDA-Public Use
  Company Number: JP-VERTEX PHARMACEUTICALS INC.-AE-2012-010811

PATIENT
  Age: 61 Year
  Sex: Male

DRUGS (6)
  1. VX-950 (TELAPREVIR) [Suspect]
     Indication: CHRONIC HEPATITIS C
     Dosage: 2250 MG, QD
     Route: 048
     Dates: start: 20120705, end: 20120714
  2. RIBAVIRIN [Concomitant]
     Dosage: 1000 MG, QD
     Route: 048
     Dates: start: 20120705, end: 20120714
  3. PEGINTRON [Concomitant]
     Dosage: 80 ?G, QW
     Route: 058
     Dates: start: 20120705, end: 20120714
  4. ADALAT [Concomitant]
     Route: 048
  5. MINIPRESS [Concomitant]
     Dosage: 0.5 MG, QD
     Route: 048
     Dates: end: 20120714
  6. ECARD [Concomitant]
     Dosage: 8/6.25 MG, QD
     Route: 048
     Dates: end: 20120714

REACTIONS (2)
  - Convulsion [Recovered/Resolved]
  - Blood creatinine increased [Recovered/Resolved]
